FAERS Safety Report 19390747 (Version 2)
Quarter: 2021Q3

REPORT INFORMATION
  Report Type: Spontaneous
  Country: JP (occurrence: JP)
  Receive Date: 20210608
  Receipt Date: 20210715
  Transmission Date: 20211014
  Serious: Yes (Hospitalization)
  Sender: FDA-Public Use
  Company Number: JP-AMGEN-JPNSP2021086377

PATIENT
  Age: 77 Year
  Sex: Male
  Weight: 73 kg

DRUGS (6)
  1. PARSABIV [Suspect]
     Active Substance: ETELCALCETIDE HYDROCHLORIDE
     Indication: HYPERPARATHYROIDISM SECONDARY
     Dosage: UNK
     Route: 010
  2. NESP [Concomitant]
     Active Substance: DARBEPOETIN ALFA
     Dosage: 40 UG, QW
     Route: 065
  3. ROCALTROL [Concomitant]
     Active Substance: CALCITRIOL
     Dosage: 0.25 UG, EVERYDAY
     Route: 048
  4. ROCALTROL [Concomitant]
     Active Substance: CALCITRIOL
     Dosage: 0.5 UG, Q56H
     Route: 048
     Dates: end: 20201202
  5. ORKEDIA [Concomitant]
     Active Substance: EVOCALCET
     Dosage: 1 MG, EVERYDAY
     Route: 048
     Dates: start: 20210402
  6. FOSRENOL [Concomitant]
     Active Substance: LANTHANUM CARBONATE
     Dosage: 1500 MG, EVERYDAY
     Route: 065

REACTIONS (1)
  - Aortic valve stenosis [Recovering/Resolving]

NARRATIVE: CASE EVENT DATE: 20210408
